FAERS Safety Report 25257728 (Version 1)
Quarter: 2025Q2

REPORT INFORMATION
  Report Type: Spontaneous
  Country: US (occurrence: US)
  Receive Date: 20250430
  Receipt Date: 20250430
  Transmission Date: 20250716
  Serious: Yes (Hospitalization)
  Sender: ELI LILLY AND COMPANY
  Company Number: US-ELI_LILLY_AND_COMPANY-US202504020625

PATIENT
  Age: 71 Year
  Sex: Female
  Weight: 65.76 kg

DRUGS (2)
  1. HUMALOG [Suspect]
     Active Substance: INSULIN LISPRO
     Indication: Product used for unknown indication
     Route: 065
  2. TYLENOL [Concomitant]
     Active Substance: ACETAMINOPHEN
     Indication: Product used for unknown indication
     Route: 065

REACTIONS (5)
  - Diabetic ketoacidosis [Unknown]
  - Loss of consciousness [Unknown]
  - Blood glucose increased [Unknown]
  - Blood pressure immeasurable [Unknown]
  - Fatigue [Unknown]

NARRATIVE: CASE EVENT DATE: 20250409
